FAERS Safety Report 20783823 (Version 1)
Quarter: 2022Q2

REPORT INFORMATION
  Report Type: Spontaneous
  Country: PT (occurrence: PT)
  Receive Date: 20220504
  Receipt Date: 20220504
  Transmission Date: 20220721
  Serious: Yes (Life-Threatening, Hospitalization)
  Sender: FDA-Public Use
  Company Number: None

PATIENT
  Age: 63 Year
  Sex: Female
  Weight: 100 kg

DRUGS (14)
  1. OLUMIANT [Suspect]
     Active Substance: BARICITINIB
     Indication: COVID-19 pneumonia
     Dosage: 2MG DE 24/24H DURANTE 14 DIAS.
     Route: 048
     Dates: start: 20220330, end: 20220412
  2. ROCURONIUM BROMIDE [Concomitant]
     Active Substance: ROCURONIUM BROMIDE
     Indication: Product used for unknown indication
     Route: 042
     Dates: start: 20220329
  3. PREDNISOLONE [Concomitant]
     Active Substance: PREDNISOLONE
     Indication: Product used for unknown indication
     Route: 048
     Dates: start: 20220325
  4. SULFAMETHOXAZOLE\TRIMETHOPRIM [Concomitant]
     Active Substance: SULFAMETHOXAZOLE\TRIMETHOPRIM
     Indication: Product used for unknown indication
     Route: 048
     Dates: start: 20220323
  5. ALFENTANILO [Concomitant]
     Indication: Product used for unknown indication
     Route: 042
     Dates: start: 20220329
  6. TACROLIMUS [Concomitant]
     Active Substance: TACROLIMUS
     Indication: Product used for unknown indication
     Route: 048
     Dates: start: 20220330
  7. PIPERACILLIN SODIUM\TAZOBACTAM SODIUM [Concomitant]
     Active Substance: PIPERACILLIN SODIUM\TAZOBACTAM SODIUM
     Indication: Product used for unknown indication
     Route: 042
     Dates: start: 20220327
  8. MIDAZOLAM [Concomitant]
     Active Substance: MIDAZOLAM
     Indication: Product used for unknown indication
     Route: 042
     Dates: start: 20220329
  9. BISACODILO [Concomitant]
     Indication: Product used for unknown indication
     Route: 048
     Dates: start: 20220325
  10. METOCLOPRAMIDE [Concomitant]
     Active Substance: METOCLOPRAMIDE
     Indication: Product used for unknown indication
     Route: 042
     Dates: start: 20220330
  11. NORADRENALINA [NOREPINEPHRINE] [Concomitant]
     Indication: Product used for unknown indication
     Route: 042
     Dates: start: 20220330
  12. INSULIN HUMAN [Concomitant]
     Active Substance: INSULIN HUMAN
     Indication: Product used for unknown indication
     Route: 058
     Dates: start: 20220323
  13. REMDESIVIR [Concomitant]
     Active Substance: REMDESIVIR
     Indication: Product used for unknown indication
     Route: 042
     Dates: start: 20220329
  14. ENOXAPARIN [Concomitant]
     Active Substance: ENOXAPARIN
     Indication: Product used for unknown indication
     Route: 058
     Dates: start: 20220322

REACTIONS (2)
  - Renal impairment [Unknown]
  - Off label use [Unknown]

NARRATIVE: CASE EVENT DATE: 20220330
